FAERS Safety Report 6268157-8 (Version None)
Quarter: 2009Q3

REPORT INFORMATION
  Report Type: 
  Country: None (occurrence: None)
  Receive Date: 20090713
  Receipt Date: 20090713
  Transmission Date: 20100115
  Serious: No
  Sender: FDA-Public Use
  Company Number: None

PATIENT
  Age: 56 Month
  Sex: Male
  Weight: 18.4 kg

DRUGS (4)
  1. NPLATE (ROMINLOSTIM) - AMGEN [Suspect]
     Indication: IDIOPATHIC THROMBOCYTOPENIC PURPURA
     Dosage: 60 MICROGRAMS ONE TIME ONLY SUBCUT.
     Route: 058
     Dates: start: 20090707
  2. NPLATE (ROMINLOSTIM) - AMGEN [Suspect]
  3. ACETYLCYSTEINE [Concomitant]
  4. CYCLOSPORINE [Concomitant]

REACTIONS (5)
  - ARTHROPOD BITE [None]
  - PRURITUS [None]
  - RASH [None]
  - SKIN LESION [None]
  - URTICARIA [None]
